FAERS Safety Report 11992451 (Version 1)
Quarter: 2016Q1

REPORT INFORMATION
  Report Type: Spontaneous
  Country: US (occurrence: None)
  Receive Date: 20160202
  Receipt Date: 20160202
  Transmission Date: 20160526
  Serious: Yes (Other)
  Sender: FDA-Public Use
  Company Number: None

PATIENT
  Age: 32 Year
  Sex: Female
  Weight: 58.97 kg

DRUGS (3)
  1. TYLENOL [Concomitant]
     Active Substance: ACETAMINOPHEN
  2. IBUPROFEN. [Concomitant]
     Active Substance: IBUPROFEN
  3. MIRENA [Suspect]
     Active Substance: LEVONORGESTREL
     Indication: CONTRACEPTION
     Dates: start: 20150605, end: 20160127

REACTIONS (9)
  - Paraesthesia [None]
  - Thinking abnormal [None]
  - Anxiety [None]
  - Toxicity to various agents [None]
  - Mood swings [None]
  - Feeling abnormal [None]
  - Insomnia [None]
  - Chills [None]
  - Headache [None]

NARRATIVE: CASE EVENT DATE: 20160201
